FAERS Safety Report 9806320 (Version 1)
Quarter: 2014Q1

REPORT INFORMATION
  Report Type: Spontaneous
  Country: US (occurrence: US)
  Receive Date: 20140109
  Receipt Date: 20140109
  Transmission Date: 20141002
  Serious: Yes (Other)
  Sender: FDA-Public Use
  Company Number: US-BRISTOL-MYERS SQUIBB COMPANY-19969773

PATIENT
  Sex: 0

DRUGS (1)
  1. ELIQUIS [Suspect]

REACTIONS (3)
  - Cerebrovascular accident [Unknown]
  - Visual impairment [Unknown]
  - Drug dose omission [Unknown]
